FAERS Safety Report 7669673-4 (Version None)
Quarter: 2011Q3

REPORT INFORMATION
  Report Type: 
  Country: None (occurrence: None)
  Receive Date: 20110808
  Receipt Date: 20110804
  Transmission Date: 20111222
  Serious: Yes (Hospitalization)
  Sender: FDA-Public Use
  Company Number: CA-ABBOTT-11P-028-0841744-00

PATIENT
  Age: 60 Year
  Sex: Male
  Weight: 99.88 kg

DRUGS (8)
  1. COLACE [Concomitant]
     Indication: DRUG THERAPY
     Route: 048
     Dates: start: 20110701
  2. SENOKOT [Concomitant]
     Indication: DRUG THERAPY
     Dosage: 1 IN 1 DAY, AT BEDTIME
     Dates: start: 20110701
  3. PANTOPRAZOLE SODIUM [Concomitant]
     Indication: DRUG THERAPY
     Route: 048
     Dates: start: 20110701
  4. DULCOLAX [Concomitant]
     Indication: DRUG THERAPY
     Route: 048
     Dates: start: 20110701
  5. CASODEX [Concomitant]
     Indication: ANTIANDROGEN THERAPY
     Route: 048
     Dates: start: 20110601
  6. DECADRON [Concomitant]
     Indication: PROSTATE CANCER METASTATIC
     Route: 048
     Dates: start: 20110601
  7. LUPRON DEPOT [Suspect]
     Indication: PROSTATE CANCER
     Route: 030
     Dates: start: 20110610
  8. CASODEX [Concomitant]
     Indication: PROSTATE CANCER

REACTIONS (3)
  - PROSTATE CANCER METASTATIC [None]
  - SPINAL FRACTURE [None]
  - BONE PAIN [None]
